FAERS Safety Report 4750954-9 (Version None)
Quarter: 2005Q3

REPORT INFORMATION
  Report Type: 
  Country: None (occurrence: None)
  Receive Date: 20050822
  Receipt Date: 20050809
  Transmission Date: 20060218
  Serious: Yes (Hospitalization)
  Sender: FDA-Public Use
  Company Number: US-2005-008914

PATIENT
  Age: 40 Year
  Sex: Female
  Weight: 78 kg

DRUGS (3)
  1. BETASERON [Suspect]
     Indication: MULTIPLE SCLEROSIS
     Dosage: 8 MIU, EVERY 2D, SUBCUTANEOUS
     Route: 058
     Dates: start: 20040210
  2. CYMBALTA [Concomitant]
  3. ABILIFY [Concomitant]

REACTIONS (5)
  - CONDITION AGGRAVATED [None]
  - HALLUCINATION, VISUAL [None]
  - MAJOR DEPRESSION [None]
  - PSYCHOTIC DISORDER [None]
  - SUICIDAL IDEATION [None]
